FAERS Safety Report 8957568 (Version 2)
Quarter: 2012Q4

REPORT INFORMATION
  Report Type: 
  Country: JP (occurrence: JP)
  Receive Date: 20121210
  Receipt Date: 20121231
  Transmission Date: 20130627
  Serious: Yes (Other)
  Sender: FDA-Public Use
  Company Number: JP-UCBSA-072542

PATIENT
  Age: 63 Year
  Sex: Female

DRUGS (4)
  1. XYZAL [Suspect]
     Indication: RHINITIS ALLERGIC
     Route: 048
     Dates: start: 20120830, end: 20120908
  2. CLARITH [Concomitant]
     Indication: RHINITIS ALLERGIC
     Route: 048
     Dates: start: 20120830, end: 20120904
  3. KIPRES [Concomitant]
     Indication: RHINITIS ALLERGIC
     Route: 048
     Dates: start: 20120830, end: 20120908
  4. MUCODYNE [Concomitant]
     Indication: RHINITIS ALLERGIC
     Route: 048
     Dates: start: 20120830, end: 20120908

REACTIONS (1)
  - Erythema multiforme [Recovered/Resolved]
